FAERS Safety Report 5739174-9 (Version None)
Quarter: 2008Q2

REPORT INFORMATION
  Report Type: 
  Country: None (occurrence: None)
  Receive Date: 20080515
  Receipt Date: 20080512
  Transmission Date: 20081010
  Serious: Yes (Death)
  Sender: FDA-Public Use
  Company Number: B0520268A

PATIENT
  Age: 59 Year
  Sex: Male

DRUGS (12)
  1. CIMETIDINE [Suspect]
     Indication: BILE DUCT CANCER
     Dosage: 400MG SINGLE DOSE
     Route: 048
     Dates: start: 20080402, end: 20080402
  2. DRUG NAME UNKNOWN [Suspect]
     Indication: BILE DUCT CANCER
     Dosage: 250MG TWICE PER DAY
     Route: 048
     Dates: start: 20080403, end: 20080424
  3. OXYCONTIN [Concomitant]
     Dates: start: 20080321
  4. OXYNORM [Concomitant]
     Dates: start: 20080129
  5. NEXIUM [Concomitant]
     Dates: start: 20080411
  6. INNOHEP [Concomitant]
     Indication: PHLEBITIS
     Dates: start: 20070823
  7. SUCRALFATE [Concomitant]
     Dates: start: 20080401
  8. LASILIX [Concomitant]
     Dates: start: 20080410
  9. DAFLON [Concomitant]
     Dates: start: 20080409
  10. DIFFU K [Concomitant]
     Dates: start: 20080417
  11. NULYTELY [Concomitant]
     Indication: CONSTIPATION PROPHYLAXIS
     Dates: start: 20080421
  12. DOMPERIDONE [Concomitant]
     Indication: NAUSEA
     Dates: start: 20080407

REACTIONS (1)
  - DEATH [None]
